FAERS Safety Report 13301921 (Version 1)
Quarter: 2017Q1

REPORT INFORMATION
  Report Type: Spontaneous
  Country: US (occurrence: US)
  Receive Date: 20170307
  Receipt Date: 20170307
  Transmission Date: 20170428
  Serious: Yes (Other)
  Sender: FDA-Public Use
  Company Number: None

PATIENT
  Age: 39 Year
  Sex: Male
  Weight: 87.75 kg

DRUGS (1)
  1. RITUXAN [Suspect]
     Active Substance: RITUXIMAB
     Indication: LEUKAEMIA
     Dosage: OTHER FREQUENCY:EVERY 28 DAYS;  INTRAVENOUS (NOT OTHERWISE SPECIFIED) ?
     Route: 042

REACTIONS (5)
  - Dyspnoea [None]
  - Feeling abnormal [None]
  - Feeling hot [None]
  - Paraesthesia [None]
  - Defaecation urgency [None]

NARRATIVE: CASE EVENT DATE: 20170302
